FAERS Safety Report 6427110-1 (Version None)
Quarter: 2009Q4

REPORT INFORMATION
  Report Type: 
  Country: None (occurrence: None)
  Receive Date: 20091026
  Receipt Date: 20091016
  Transmission Date: 20100525
  Serious: Yes (Hospitalization)
  Sender: FDA-Public Use
  Company Number: WAES 0806USA02134

PATIENT
  Age: 80 Year
  Sex: Male
  Weight: 86.637 kg

DRUGS (23)
  1. CAP VORINOSTAT UNK [Suspect]
     Indication: ACUTE MYELOID LEUKAEMIA
     Dosage: 400 MG/DAILY/PO
     Route: 048
     Dates: start: 20080317, end: 20080330
  2. CAP VORINOSTAT UNK [Suspect]
     Indication: ACUTE MYELOID LEUKAEMIA
     Dosage: 400 MG/DAILY/PO
     Route: 048
     Dates: start: 20080414, end: 20080427
  3. CAP VORINOSTAT UNK [Suspect]
     Indication: ACUTE MYELOID LEUKAEMIA
     Dosage: 400 MG/DAILY/PO
     Route: 048
     Dates: start: 20080514, end: 20080527
  4. CAP VORINOSTAT UNK [Suspect]
     Indication: ACUTE MYELOID LEUKAEMIA
     Dosage: 400 MG/DAILY/PO
     Route: 048
     Dates: start: 20080616, end: 20080629
  5. DECITABINE 20 MG [Suspect]
     Indication: ACUTE MYELOID LEUKAEMIA
     Dosage: 38.6 MG/DAILY/IV; 40.2 MG/DAILY/IV; 40 MG/DAILY/IV
     Route: 042
     Dates: start: 20080317, end: 20080321
  6. DECITABINE 20 MG [Suspect]
     Indication: ACUTE MYELOID LEUKAEMIA
     Dosage: 38.6 MG/DAILY/IV; 40.2 MG/DAILY/IV; 40 MG/DAILY/IV
     Route: 042
     Dates: start: 20080414, end: 20080418
  7. DECITABINE 20 MG [Suspect]
     Indication: ACUTE MYELOID LEUKAEMIA
     Dosage: 38.6 MG/DAILY/IV; 40.2 MG/DAILY/IV; 40 MG/DAILY/IV
     Route: 042
     Dates: start: 20080514, end: 20080518
  8. DECITABINE 20 MG [Suspect]
     Indication: ACUTE MYELOID LEUKAEMIA
     Dosage: 38.6 MG/DAILY/IV; 40.2 MG/DAILY/IV; 40 MG/DAILY/IV
     Route: 042
     Dates: start: 20080616, end: 20080616
  9. AVELOX [Concomitant]
  10. BENADRYL [Concomitant]
  11. LOVENOX [Concomitant]
  12. MUCINEX [Concomitant]
  13. ACETAMINOPHEN [Concomitant]
  14. ACYCLOVIR SODIUM [Concomitant]
  15. AMLODIPINE BESYLATE [Concomitant]
  16. EZETIMIBE [Concomitant]
  17. INSULIN GLARGINE [Concomitant]
  18. INSULIN LISPRO [Concomitant]
  19. OLMESARTAN MEDOXOMIL [Concomitant]
  20. PAROXETINE HYDROCHLORIDE [Concomitant]
  21. PIOGLITAZONE HCL [Concomitant]
  22. POSACONAZOLE [Concomitant]
  23. TAMSULOSIN HYDROCHLORIDE [Concomitant]

REACTIONS (19)
  - BLOOD ALBUMIN DECREASED [None]
  - BLOOD CALCIUM DECREASED [None]
  - BLOOD GLUCOSE INCREASED [None]
  - BLOOD URIC ACID DECREASED [None]
  - CONSTIPATION [None]
  - FEBRILE NEUTROPENIA [None]
  - FLATULENCE [None]
  - GASTROOESOPHAGEAL REFLUX DISEASE [None]
  - HAEMATOCRIT DECREASED [None]
  - HAEMOGLOBIN DECREASED [None]
  - LOBAR PNEUMONIA [None]
  - LYMPHOCYTE COUNT INCREASED [None]
  - NAUSEA [None]
  - PLATELET COUNT DECREASED [None]
  - PNEUMONIA FUNGAL [None]
  - PROTHROMBIN TIME PROLONGED [None]
  - RED BLOOD CELL COUNT DECREASED [None]
  - VOMITING [None]
  - WHITE BLOOD CELL COUNT DECREASED [None]
